FAERS Safety Report 24444470 (Version 2)
Quarter: 2024Q4

REPORT INFORMATION
  Report Type: Report from Study
  Country: US (occurrence: US)
  Receive Date: 20241016
  Receipt Date: 20241017
  Transmission Date: 20250115
  Serious: No
  Sender: ROCHE
  Company Number: US-ROCHE-2793092

PATIENT
  Age: 35 Year
  Sex: Female

DRUGS (7)
  1. RITUXAN [Suspect]
     Active Substance: RITUXIMAB
     Indication: Multiple sclerosis
     Dosage: FORM STRENGTH: 500 MG AND 100 MG, ON DAY 1 AND 15 DAY THEN EVERY 6 MONTHS
     Route: 065
     Dates: start: 20191016
  2. RITUXAN [Suspect]
     Active Substance: RITUXIMAB
     Dosage: FORM STRENGTH: 500 MG AND 100 MG
     Route: 065
     Dates: start: 20210330
  3. RITUXAN [Suspect]
     Active Substance: RITUXIMAB
     Dosage: ONGOING: YES, EVERY 6 MONTHS
     Route: 065
     Dates: start: 20211001
  4. RITUXAN [Suspect]
     Active Substance: RITUXIMAB
     Route: 065
  5. VITAMIN D3 [Concomitant]
     Active Substance: CHOLECALCIFEROL
  6. CHOLECALCIFEROL [Concomitant]
     Active Substance: CHOLECALCIFEROL
  7. FLEXERIL [Concomitant]
     Active Substance: CYCLOBENZAPRINE HYDROCHLORIDE

REACTIONS (2)
  - Off label use [Unknown]
  - No adverse event [Unknown]
